FAERS Safety Report 18280216 (Version 2)
Quarter: 2021Q1

REPORT INFORMATION
  Report Type: Other
  Country: GB (occurrence: GB)
  Receive Date: 20200918
  Receipt Date: 20210119
  Transmission Date: 20210419
  Serious: Yes (Hospitalization, Other)
  Sender: FDA-Public Use
  Company Number: GB-ROCHE-2676589

PATIENT
  Sex: Female

DRUGS (1)
  1. ROACTEMRA [Suspect]
     Active Substance: TOCILIZUMAB
     Indication: RHEUMATOID ARTHRITIS
     Dosage: TREATMENT DATE : 19/JUN/2018
     Route: 058
     Dates: start: 2017

REACTIONS (5)
  - Gastroenteritis [Unknown]
  - Influenza [Unknown]
  - Mouth ulceration [Unknown]
  - Abscess oral [Unknown]
  - Treatment noncompliance [Unknown]
